FAERS Safety Report 6409508-0 (Version None)
Quarter: 2009Q4

REPORT INFORMATION
  Report Type: 
  Country: None (occurrence: None)
  Receive Date: 20091013
  Receipt Date: 20091006
  Transmission Date: 20100525
  Serious: Yes (Other)
  Sender: FDA-Public Use
  Company Number: A0809453A

PATIENT
  Age: 84 Year
  Sex: Female

DRUGS (2)
  1. SIMETHICONE (FORMULATION UNKNOWN) (SIMETHICONE) [Suspect]
     Indication: FLATULENCE
     Dosage: ORAL
     Route: 048
     Dates: end: 20090921
  2. PANTOPRAZOLE [Concomitant]

REACTIONS (4)
  - ABDOMINAL PAIN LOWER [None]
  - FLATULENCE [None]
  - MUSCLE TWITCHING [None]
  - SECRETION DISCHARGE [None]
